FAERS Safety Report 7250865-3 (Version None)
Quarter: 2011Q1

REPORT INFORMATION
  Report Type: 
  Country: None (occurrence: None)
  Receive Date: 20110128
  Receipt Date: 20110124
  Transmission Date: 20110831
  Serious: Yes (Hospitalization)
  Sender: FDA-Public Use
  Company Number: A0770026A

PATIENT
  Sex: Male

DRUGS (4)
  1. ALBUTEROL [Concomitant]
  2. VENTOLIN [Suspect]
     Indication: ASTHMA
     Dosage: 2PUFF SINGLE DOSE
     Route: 055
     Dates: start: 20090207
  3. STEROID [Concomitant]
  4. THEO-DUR [Concomitant]
     Dosage: 400MG PER DAY

REACTIONS (11)
  - DYSPNOEA [None]
  - EMOTIONAL DISORDER [None]
  - PRODUCT QUALITY ISSUE [None]
  - ASPHYXIA [None]
  - VOMITING [None]
  - ABDOMINAL DISCOMFORT [None]
  - CHOKING [None]
  - RETCHING [None]
  - NAUSEA [None]
  - ASTHMA [None]
  - WHEEZING [None]
